FAERS Safety Report 9103148 (Version 2)
Quarter: 2013Q1

REPORT INFORMATION
  Report Type: Spontaneous
  Country: US (occurrence: US)
  Receive Date: 20130219
  Receipt Date: 20130312
  Transmission Date: 20140127
  Serious: No
  Sender: FDA-Public Use
  Company Number: PHEH2013US003983

PATIENT
  Age: 86 Year
  Sex: Male

DRUGS (1)
  1. TASIGNA [Suspect]
     Indication: NEOPLASM MALIGNANT
     Dosage: 200 MG, BID
     Route: 048
     Dates: start: 20130122

REACTIONS (2)
  - Drug administration error [Unknown]
  - Vision blurred [Not Recovered/Not Resolved]
